FAERS Safety Report 12922516 (Version 1)
Quarter: 2016Q4

REPORT INFORMATION
  Report Type: Spontaneous
  Country: US (occurrence: US)
  Receive Date: 20161109
  Receipt Date: 20161109
  Transmission Date: 20170207
  Serious: Yes (Hospitalization)
  Sender: FDA-Public Use
  Company Number: US-BRAINTREE LABORATORIES-160778-1

PATIENT
  Age: 56 Year
  Sex: Female
  Weight: 56.7 kg

DRUGS (1)
  1. PEG-3350, SODIUM CHLORIDE, SODIUM BICARBONATE AND POTASSIUM CHLORIDE F [Suspect]
     Active Substance: POLYETHYLENE GLYCOL 3350\POTASSIUM CHLORIDE\SODIUM BICARBONATE\SODIUM CHLORIDE
     Indication: COLONOSCOPY
     Dosage: 2L
     Route: 048
     Dates: start: 20161019, end: 20161019

REACTIONS (30)
  - Red blood cell count decreased [None]
  - Vomiting [None]
  - Blood bicarbonate decreased [None]
  - Blood calcium decreased [None]
  - PCO2 decreased [None]
  - Dysarthria [None]
  - Aggression [None]
  - Generalised tonic-clonic seizure [None]
  - Blood sodium decreased [None]
  - Blood urea decreased [None]
  - Blood thyroid stimulating hormone decreased [None]
  - Blood albumin decreased [None]
  - Hyperhidrosis [None]
  - Tri-iodothyronine decreased [None]
  - Monocyte count increased [None]
  - Agitation [None]
  - Aspartate aminotransferase increased [None]
  - Blood folate increased [None]
  - Blood pressure increased [None]
  - Tri-iodothyronine free decreased [None]
  - Blood potassium decreased [None]
  - Haematocrit decreased [None]
  - Blood creatine phosphokinase increased [None]
  - Nausea [None]
  - Confusional state [None]
  - Headache [None]
  - Dyspnoea [None]
  - Blood chloride decreased [None]
  - Blood glucose abnormal [None]
  - Haemoglobin decreased [None]

NARRATIVE: CASE EVENT DATE: 20161019
